FAERS Safety Report 15920050 (Version 1)
Quarter: 2019Q1

REPORT INFORMATION
  Report Type: Spontaneous
  Country: US (occurrence: US)
  Receive Date: 20190205
  Receipt Date: 20190205
  Transmission Date: 20190417
  Serious: No
  Sender: FDA-Public Use
  Company Number: US-ROCHE-2147030

PATIENT
  Age: 41 Year
  Sex: Female

DRUGS (1)
  1. XOLAIR [Suspect]
     Active Substance: OMALIZUMAB
     Indication: PRODUCT USED FOR UNKNOWN INDICATION
     Dosage: 2 MONTHS
     Route: 058

REACTIONS (4)
  - Rash erythematous [Unknown]
  - Alopecia [Unknown]
  - Hair growth abnormal [Unknown]
  - Vision blurred [Unknown]

NARRATIVE: CASE EVENT DATE: 20180627
